FAERS Safety Report 21616804 (Version 1)
Quarter: 2022Q4

REPORT INFORMATION
  Report Type: Spontaneous
  Country: US (occurrence: US)
  Receive Date: 20221118
  Receipt Date: 20221118
  Transmission Date: 20230112
  Serious: No
  Sender: FDA-Public Use
  Company Number: US-SANOFI-01365344

PATIENT
  Age: 85 Year
  Sex: Female

DRUGS (4)
  1. DUPIXENT [Suspect]
     Active Substance: DUPILUMAB
     Indication: Polycythaemia vera
     Dosage: UNK
     Dates: start: 202210
  2. HYDROXYZINE [Suspect]
     Active Substance: HYDROXYZINE HYDROCHLORIDE
  3. JAKAFI [Concomitant]
     Active Substance: RUXOLITINIB
  4. BENADRYL [Concomitant]
     Active Substance: DIPHENHYDRAMINE HYDROCHLORIDE

REACTIONS (4)
  - Dyspnoea [Unknown]
  - Parkinsonism [Unknown]
  - Product use in unapproved indication [Unknown]
  - Product prescribing error [Unknown]
